FAERS Safety Report 12783358 (Version 1)
Quarter: 2016Q3

REPORT INFORMATION
  Report Type: Spontaneous
  Country: US (occurrence: US)
  Receive Date: 20160926
  Receipt Date: 20160926
  Transmission Date: 20161109
  Serious: Yes (Other)
  Sender: FDA-Public Use
  Company Number: None

PATIENT
  Sex: Female
  Weight: 114.31 kg

DRUGS (1)
  1. IRBESARTAN 150 MG [Suspect]
     Active Substance: IRBESARTAN
     Indication: HYPERTENSION
     Route: 048

REACTIONS (6)
  - Drug ineffective [None]
  - Product substitution issue [None]
  - Dizziness [None]
  - Blood pressure increased [None]
  - Asthenia [None]
  - Loss of consciousness [None]

NARRATIVE: CASE EVENT DATE: 2013
